FAERS Safety Report 6978369-3 (Version None)
Quarter: 2010Q3

REPORT INFORMATION
  Report Type: 
  Country: None (occurrence: None)
  Receive Date: 20100908
  Receipt Date: 20100826
  Transmission Date: 20110219
  Serious: Yes (Life-Threatening, Hospitalization)
  Sender: FDA-Public Use
  Company Number: A-US2010-371113

PATIENT
  Age: 42 Year
  Sex: Female

DRUGS (5)
  1. TRACLEER [Suspect]
     Indication: PULMONARY ARTERIAL HYPERTENSION
     Dosage: ORAL; 62.5 ORAL; 125, ORAL
     Route: 048
     Dates: start: 20080707
  2. TRACLEER [Suspect]
     Indication: PULMONARY ARTERIAL HYPERTENSION
     Dosage: ORAL; 62.5 ORAL; 125, ORAL
     Route: 048
     Dates: start: 20100501
  3. TRACLEER [Suspect]
     Indication: PULMONARY ARTERIAL HYPERTENSION
     Dosage: ORAL; 62.5 ORAL; 125, ORAL
     Route: 048
     Dates: start: 20100623
  4. REVATIO [Concomitant]
  5. COUMADIN [Concomitant]

REACTIONS (7)
  - GASTROOESOPHAGEAL REFLUX DISEASE [None]
  - INTERSTITIAL LUNG DISEASE [None]
  - ISCHAEMIC HEPATITIS [None]
  - PNEUMONIA [None]
  - PULMONARY HYPERTENSION [None]
  - SARCOIDOSIS [None]
  - TREATMENT NONCOMPLIANCE [None]
